FAERS Safety Report 5655287-4 (Version None)
Quarter: 2008Q1

REPORT INFORMATION
  Report Type: 
  Country: None (occurrence: None)
  Receive Date: 20080307
  Receipt Date: 20080227
  Transmission Date: 20080703
  Serious: Yes (Hospitalization)
  Sender: FDA-Public Use
  Company Number: B0511230A

PATIENT
  Age: 35 Year
  Sex: Male

DRUGS (4)
  1. AUGMENTIN '125' [Suspect]
     Dosage: 1G THREE TIMES PER DAY
     Route: 048
     Dates: start: 20080104, end: 20080110
  2. DOLIPRANE [Suspect]
     Dosage: 1G THREE TIMES PER DAY
     Route: 048
     Dates: start: 20080104, end: 20080111
  3. CONTRAMAL [Suspect]
     Dosage: 100MG TWICE PER DAY
     Route: 048
     Dates: start: 20080104, end: 20080107
  4. LAMISIL [Concomitant]
     Indication: ONYCHOMYCOSIS
     Route: 048
     Dates: start: 20070815

REACTIONS (3)
  - PALMAR ERYTHEMA [None]
  - RASH MACULO-PAPULAR [None]
  - RASH MORBILLIFORM [None]
